FAERS Safety Report 6393318-7 (Version None)
Quarter: 2009Q4

REPORT INFORMATION
  Report Type: 
  Country: None (occurrence: None)
  Receive Date: 20091008
  Receipt Date: 20091005
  Transmission Date: 20100525
  Serious: Yes (Hospitalization)
  Sender: FDA-Public Use
  Company Number: PHHY2009FR41814

PATIENT
  Sex: Female

DRUGS (4)
  1. VOLTAREN [Suspect]
     Indication: BACK PAIN
     Dosage: 1 DF, ONCE/SINGLE
     Dates: start: 20090107, end: 20090107
  2. ACUPAN [Concomitant]
     Indication: BACK PAIN
     Dosage: UNK
     Dates: start: 20090107, end: 20090107
  3. EFFEXOR [Concomitant]
     Dosage: UNK
  4. TEMESTA [Concomitant]
     Dosage: UNK

REACTIONS (3)
  - ERYSIPELAS [None]
  - INJECTION SITE REACTION [None]
  - PANNICULITIS [None]
